FAERS Safety Report 5269002-X (Version None)
Quarter: 2007Q1

REPORT INFORMATION
  Report Type: 
  Country: None (occurrence: None)
  Receive Date: 20070319
  Receipt Date: 20070312
  Transmission Date: 20070707
  Serious: Yes (Death, Hospitalization)
  Sender: FDA-Public Use
  Company Number: US-SANOFI-SYNTHELABO-A03200701912

PATIENT
  Age: 88 Year
  Sex: Female

DRUGS (4)
  1. PLAQUENIL [Suspect]
     Indication: RHEUMATOID ARTHRITIS
     Route: 048
  2. ENALAPRIL MALEATE [Concomitant]
     Dosage: UNK
     Route: 065
  3. GLYBURIDE [Concomitant]
     Dosage: UNK
     Route: 065
  4. METHOTREXATE [Concomitant]
     Dosage: UNK
     Route: 065

REACTIONS (6)
  - ASTHENIA [None]
  - DYSPNOEA [None]
  - MUSCLE NECROSIS [None]
  - MYOPATHY TOXIC [None]
  - PNEUMONIA [None]
  - RESPIRATORY FAILURE [None]
